APPROVED DRUG PRODUCT: DUPHALAC
Active Ingredient: LACTULOSE
Strength: 10GM/15ML
Dosage Form/Route: SOLUTION;ORAL
Application: A072372 | Product #001
Applicant: SOLVAY PHARMACEUTICALS
Approved: Mar 22, 1989 | RLD: No | RS: No | Type: DISCN